FAERS Safety Report 24947249 (Version 1)
Quarter: 2025Q1

REPORT INFORMATION
  Report Type: Spontaneous
  Country: US (occurrence: US)
  Receive Date: 20250210
  Receipt Date: 20250210
  Transmission Date: 20250409
  Serious: Yes (Other)
  Sender: ALKEM
  Company Number: US-ALKEM LABORATORIES LIMITED-US-ALKEM-2024-20470

PATIENT
  Sex: Male

DRUGS (2)
  1. FINASTERIDE [Suspect]
     Active Substance: FINASTERIDE
     Indication: Alopecia
     Route: 065
  2. MINOXIDIL [Concomitant]
     Active Substance: MINOXIDIL
     Indication: Product used for unknown indication
     Route: 065

REACTIONS (6)
  - Erectile dysfunction [Recovered/Resolved]
  - Dizziness [Recovered/Resolved]
  - Laziness [Recovered/Resolved]
  - Thinking abnormal [Recovered/Resolved]
  - Abnormal behaviour [Recovered/Resolved]
  - Hypoaesthesia [Recovered/Resolved]
